FAERS Safety Report 24313813 (Version 1)
Quarter: 2024Q3

REPORT INFORMATION
  Report Type: Spontaneous
  Country: JP (occurrence: JP)
  Receive Date: 20240912
  Receipt Date: 20240912
  Transmission Date: 20241017
  Serious: Yes (Hospitalization)
  Sender: EISAI
  Company Number: JP-Eisai-202406976_LEN-RCC_P_1

PATIENT
  Age: 79 Year
  Sex: Male
  Weight: 56 kg

DRUGS (5)
  1. LENVIMA [Suspect]
     Active Substance: LENVATINIB
     Indication: Renal cancer
     Route: 048
     Dates: start: 20240129, end: 20240822
  2. KEYTRUDA [Suspect]
     Active Substance: PEMBROLIZUMAB
     Indication: Renal cancer
     Route: 041
     Dates: start: 20240214, end: 20240731
  3. RYBELSUS [Concomitant]
     Active Substance: SEMAGLUTIDE
     Indication: Product used for unknown indication
     Dosage: DOSE UNKNOWN
     Route: 048
  4. DAPAGLIFLOZIN [Concomitant]
     Active Substance: DAPAGLIFLOZIN
     Indication: Product used for unknown indication
     Dosage: DOSE UNKNOWN
     Route: 048
  5. LEVOTHYROXINE [Concomitant]
     Active Substance: LEVOTHYROXINE\LEVOTHYROXINE SODIUM
     Indication: Hypothyroidism
     Dosage: DOSE UNKNOWN
     Route: 065

REACTIONS (1)
  - Immune-mediated hypothyroidism [Recovering/Resolving]

NARRATIVE: CASE EVENT DATE: 20240601
